FAERS Safety Report 9697388 (Version 1)
Quarter: 2013Q4

REPORT INFORMATION
  Report Type: Spontaneous
  Country: US (occurrence: None)
  Receive Date: 20131119
  Receipt Date: 20131119
  Transmission Date: 20140711
  Serious: Yes (Hospitalization)
  Sender: FDA-Public Use
  Company Number: None

PATIENT
  Age: 70 Year
  Sex: Male

DRUGS (5)
  1. REQUIP [Suspect]
     Indication: SLEEP DISORDER
     Route: 048
  2. SEROQUEL [Concomitant]
  3. FLOMAX [Concomitant]
  4. FUROSEMIDE [Concomitant]
  5. HYDROCHLOROTHIAZIDE [Concomitant]

REACTIONS (3)
  - Abnormal behaviour [None]
  - Feeling abnormal [None]
  - Personality change [None]
